FAERS Safety Report 7198688-8 (Version None)
Quarter: 2010Q4

REPORT INFORMATION
  Report Type: 
  Country: None (occurrence: None)
  Receive Date: 20101227
  Receipt Date: 20101221
  Transmission Date: 20110411
  Serious: Yes (Death, Other)
  Sender: FDA-Public Use
  Company Number: SI-ELI_LILLY_AND_COMPANY-SI201012005060

PATIENT
  Age: 65 Year
  Sex: Male

DRUGS (1)
  1. GEMCITABINE HCL [Suspect]
     Indication: ADENOCARCINOMA PANCREAS
     Dosage: 1000 MG/M2, WEEKLY (1/W)
     Dates: start: 20090316

REACTIONS (6)
  - MALIGNANT NEOPLASM PROGRESSION [None]
  - NECROSIS [None]
  - PLATELET COUNT INCREASED [None]
  - RAYNAUD'S PHENOMENON [None]
  - VASCULITIS [None]
  - VISCERAL ARTERIAL ISCHAEMIA [None]
